FAERS Safety Report 10818298 (Version 3)
Quarter: 2015Q1

REPORT INFORMATION
  Report Type: Spontaneous
  Country: BR (occurrence: BR)
  Receive Date: 20150218
  Receipt Date: 20150313
  Transmission Date: 20150721
  Serious: Yes (Other)
  Sender: FDA-Public Use
  Company Number: BR-PFIZER INC-2015060049

PATIENT
  Age: 24 Year
  Sex: Female

DRUGS (1)
  1. LYRICA [Suspect]
     Active Substance: PREGABALIN
     Indication: PAIN
     Dosage: 75 MG IN ^TABLETS^ (AS REPORTED), 1X/DAY AT NIGHT (USED ONLY ONCE)
     Dates: start: 20150211, end: 20150211

REACTIONS (2)
  - Hepatotoxicity [Recovered/Resolved]
  - Hepatic enzyme increased [Unknown]

NARRATIVE: CASE EVENT DATE: 20150211
